FAERS Safety Report 14913168 (Version 2)
Quarter: 2018Q2

REPORT INFORMATION
  Report Type: Spontaneous
  Country: FR (occurrence: FR)
  Receive Date: 20180518
  Receipt Date: 20180608
  Transmission Date: 20180711
  Serious: Yes (Other)
  Sender: FDA-Public Use
  Company Number: PHHY2018FR002261

PATIENT
  Age: 56 Year
  Sex: Female

DRUGS (2)
  1. MEKINIST [Suspect]
     Active Substance: TRAMETINIB DIMETHYL SULFOXIDE
     Indication: BRONCHIAL CARCINOMA
     Dosage: 2 MG, QD
     Route: 048
     Dates: start: 20171229, end: 20180116
  2. TAFINLAR [Suspect]
     Active Substance: DABRAFENIB MESYLATE
     Indication: BRONCHIAL CARCINOMA
     Dosage: 300 MG, QD
     Route: 048
     Dates: start: 20171229, end: 20180116

REACTIONS (3)
  - Neutropenia [Recovered/Resolved]
  - Hepatitis cholestatic [Recovered/Resolved]
  - Erythema nodosum [Recovered/Resolved]

NARRATIVE: CASE EVENT DATE: 20180114
